FAERS Safety Report 5266850-7 (Version None)
Quarter: 2007Q1

REPORT INFORMATION
  Report Type: 
  Country: None (occurrence: None)
  Receive Date: 20061213
  Receipt Date: 20020830
  Transmission Date: 20070707
  Serious: No
  Sender: FDA-Public Use
  Company Number: 2002UW06953

PATIENT
  Age: 33 Year
  Sex: Female
  Weight: 58.9676 kg

DRUGS (5)
  1. NOLVADEX [Suspect]
     Indication: BREAST CANCER
     Dosage: 20 MG QD PO
     Route: 048
     Dates: start: 20000601, end: 20020410
  2. NOLVADEX [Suspect]
     Indication: PROPHYLAXIS
     Dosage: 20 MG QD PO
     Route: 048
     Dates: start: 20000601, end: 20020410
  3. VIOXX [Concomitant]
  4. ATIVAN [Concomitant]
  5. EFFEXOR [Concomitant]

REACTIONS (1)
  - OVARIAN CYST [None]
